FAERS Safety Report 13681322 (Version 2)
Quarter: 2017Q4

REPORT INFORMATION
  Report Type: Spontaneous
  Country: US (occurrence: US)
  Receive Date: 20170623
  Receipt Date: 20171017
  Transmission Date: 20180320
  Serious: No
  Sender: FDA-Public Use
  Company Number: US-PFIZER INC-2017272987

PATIENT
  Age: 73 Year
  Sex: Female

DRUGS (2)
  1. SUTENT [Suspect]
     Active Substance: SUNITINIB MALATE
     Dosage: 50 MG, CYCLIC, (2 TABS EVERY DAY X 14 DAYS, 7 DAYS OFF)
     Dates: start: 20161228
  2. SUTENT [Suspect]
     Active Substance: SUNITINIB MALATE
     Dosage: 25 MG, CYCLIC (1 CAPSULE PO QDAY X7DAYS, 7DAYS OFF)
     Route: 048

REACTIONS (2)
  - Tongue discomfort [Unknown]
  - Stomatitis [Unknown]
